FAERS Safety Report 7560401-X (Version None)
Quarter: 2011Q2

REPORT INFORMATION
  Report Type: 
  Country: None (occurrence: None)
  Receive Date: 20110621
  Receipt Date: 20110531
  Transmission Date: 20111010
  Serious: No
  Sender: FDA-Public Use
  Company Number: US-B.I. PHARMACEUTICALS,INC./RIDGEFIELD-2011-BP-08547BP

PATIENT
  Sex: Male

DRUGS (15)
  1. RANITIDINE [Concomitant]
     Indication: GASTROOESOPHAGEAL REFLUX DISEASE
     Dates: start: 19960301
  2. RETIN-A [Concomitant]
     Indication: SKIN DISORDER
  3. RETIN-A [Concomitant]
     Indication: ACNE
     Dates: start: 19900101
  4. FLUTICASONE PROPIONATE [Concomitant]
     Indication: MULTIPLE ALLERGIES
  5. LORANTIDINE [Concomitant]
     Indication: MULTIPLE ALLERGIES
     Dates: start: 19950201
  6. LISINOPRIL [Concomitant]
     Indication: HYPERTENSION
     Dates: start: 20041001
  7. TERAZOSIN HCL [Concomitant]
     Indication: PROSTATIC DISORDER
     Dates: start: 20050101
  8. AVODART [Concomitant]
     Indication: HYPERPLASIA
  9. PRADAXA [Suspect]
     Indication: ATRIAL FIBRILLATION
     Dosage: 300 MG
     Route: 048
     Dates: start: 20110201
  10. PRADAXA [Suspect]
     Indication: ANTICOAGULANT THERAPY
  11. COREG [Concomitant]
     Indication: ATRIAL FIBRILLATION
     Dates: start: 20090601
  12. COREG [Concomitant]
     Indication: HEART RATE
  13. TERAZOSIN HCL [Concomitant]
     Indication: HYPERPLASIA
  14. LORANTIDINE [Concomitant]
     Indication: MECHANICAL URTICARIA
  15. AVODART [Concomitant]
     Indication: PROSTATIC DISORDER
     Dates: start: 20090601

REACTIONS (2)
  - JOINT SWELLING [None]
  - OEDEMA PERIPHERAL [None]
